FAERS Safety Report 6770017-0 (Version None)
Quarter: 2010Q2

REPORT INFORMATION
  Report Type: 
  Country: None (occurrence: None)
  Receive Date: 20100615
  Receipt Date: 20100607
  Transmission Date: 20101027
  Serious: Yes (Other)
  Sender: FDA-Public Use
  Company Number: US-JNJFOC-20100602704

PATIENT
  Sex: Female

DRUGS (3)
  1. CONCERTA [Suspect]
     Indication: ATTENTION DEFICIT/HYPERACTIVITY DISORDER
     Route: 048
  2. CONCERTA [Suspect]
     Dosage: ONE 27 MG TABLETS AND ONE HALF OF 18 MG TABLET
     Route: 048
  3. CONCERTA [Suspect]
     Route: 048

REACTIONS (8)
  - DISTURBANCE IN SOCIAL BEHAVIOUR [None]
  - EATING DISORDER [None]
  - HALLUCINATION, AUDITORY [None]
  - INSOMNIA [None]
  - NIGHTMARE [None]
  - PARANOIA [None]
  - PRODUCT QUALITY ISSUE [None]
  - WRONG TECHNIQUE IN DRUG USAGE PROCESS [None]
